FAERS Safety Report 9976126 (Version 1)
Quarter: 2014Q1

REPORT INFORMATION
  Report Type: Spontaneous
  Country: US (occurrence: FR)
  Receive Date: 20140306
  Receipt Date: 20140306
  Transmission Date: 20141002
  Serious: Yes (Death)
  Sender: FDA-Public Use
  Company Number: FR-FRI-1000060370

PATIENT
  Age: 75 Year
  Sex: Male

DRUGS (2)
  1. CEFTAROLINE FOSAMIL [Suspect]
     Indication: ENDOCARDITIS STAPHYLOCOCCAL
     Route: 042
     Dates: start: 201401
  2. TIENAM [Suspect]
     Indication: KLEBSIELLA SEPSIS
     Route: 041
     Dates: start: 201312

REACTIONS (2)
  - Septic shock [Fatal]
  - Off label use [Unknown]
